FAERS Safety Report 9711030 (Version 1)
Quarter: 2013Q4

REPORT INFORMATION
  Report Type: Spontaneous
  Country: US (occurrence: US)
  Receive Date: 20131126
  Receipt Date: 20131126
  Transmission Date: 20140711
  Serious: No
  Sender: FDA-Public Use
  Company Number: US-BRISTOL-MYERS SQUIBB COMPANY-19034685

PATIENT
  Age: 54 Year
  Sex: Male
  Weight: 104.31 kg

DRUGS (5)
  1. BYDUREON [Suspect]
     Dates: start: 20130617
  2. METFORMIN [Concomitant]
  3. GLIPIZIDE [Concomitant]
  4. LOSARTAN POTASSIUM [Concomitant]
  5. ASPIRIN [Concomitant]

REACTIONS (1)
  - Injection site pain [Recovered/Resolved]
